FAERS Safety Report 13701839 (Version 1)
Quarter: 2017Q2

REPORT INFORMATION
  Report Type: Spontaneous
  Country: US (occurrence: US)
  Receive Date: 20170629
  Receipt Date: 20170629
  Transmission Date: 20170830
  Serious: Yes (Hospitalization, Other)
  Sender: FDA-Public Use
  Company Number: US-MYLANLABS-2017M1038522

PATIENT

DRUGS (2)
  1. BUPROPION. [Suspect]
     Active Substance: BUPROPION
     Indication: PRODUCT USED FOR UNKNOWN INDICATION
     Dosage: TEN EXTENDED RELEASE CAPSULES OF BUPROPION 150MG
     Route: 065
  2. LORAZEPAM. [Concomitant]
     Active Substance: LORAZEPAM
     Indication: PRODUCT USED FOR UNKNOWN INDICATION
     Route: 065

REACTIONS (11)
  - Brain stem syndrome [Unknown]
  - Areflexia [Unknown]
  - Generalised tonic-clonic seizure [Unknown]
  - Intentional overdose [Recovering/Resolving]
  - Electroencephalogram abnormal [Unknown]
  - Cardiac arrest [Recovered/Resolved]
  - Somnolence [Unknown]
  - Unresponsive to stimuli [Unknown]
  - Pupil fixed [Unknown]
  - Tachycardia [Unknown]
  - Suicide attempt [Recovering/Resolving]
